FAERS Safety Report 10204878 (Version 4)
Quarter: 2014Q3

REPORT INFORMATION
  Report Type: Spontaneous
  Country: JP (occurrence: JP)
  Receive Date: 20140529
  Receipt Date: 20140701
  Transmission Date: 20150326
  Serious: Yes (Hospitalization, Other)
  Sender: FDA-Public Use
  Company Number: JP-BRISTOL-MYERS SQUIBB COMPANY-20752382

PATIENT
  Age: 9 Decade
  Sex: Male
  Weight: 60 kg

DRUGS (1)
  1. ELIQUIS [Suspect]
     Active Substance: APIXABAN
     Indication: CEREBROVASCULAR ACCIDENT PROPHYLAXIS
     Route: 048
     Dates: start: 20140122, end: 20140501

REACTIONS (4)
  - Erosive duodenitis [Recovered/Resolved]
  - Renal impairment [Unknown]
  - Anaemia [Unknown]
  - Small intestinal haemorrhage [Unknown]

NARRATIVE: CASE EVENT DATE: 201405
